FAERS Safety Report 8227276-7 (Version None)
Quarter: 2012Q1

REPORT INFORMATION
  Report Type: 
  Country: None (occurrence: None)
  Receive Date: 20120322
  Receipt Date: 20120312
  Transmission Date: 20120608
  Serious: Yes (Other)
  Sender: FDA-Public Use
  Company Number: PHHY2012DE023291

PATIENT
  Sex: Female
  Weight: 75 kg

DRUGS (1)
  1. AMLODIPINE/VALSARTAN/HYDROCHLOROTHIAZIDE [Suspect]
     Indication: HYPERTENSION
     Dosage: 1 DF, QD
     Route: 048
     Dates: start: 20120218, end: 20120312

REACTIONS (2)
  - OLIGURIA [None]
  - OEDEMA PERIPHERAL [None]
